FAERS Safety Report 16359969 (Version 2)
Quarter: 2019Q2

REPORT INFORMATION
  Report Type: Spontaneous
  Country: US (occurrence: US)
  Receive Date: 20190528
  Receipt Date: 20190531
  Transmission Date: 20190711
  Serious: No
  Sender: FDA-Public Use
  Company Number: US-JNJFOC-20190518760

PATIENT
  Age: 82 Year
  Sex: Female

DRUGS (2)
  1. ROGAINE [Suspect]
     Active Substance: MINOXIDIL
     Route: 061
  2. ROGAINE [Suspect]
     Active Substance: MINOXIDIL
     Indication: ALOPECIA
     Dosage: AS INSTRUCTED BY PACKAGE.
     Route: 061

REACTIONS (2)
  - Eye irritation [Unknown]
  - Accidental exposure to product [Unknown]

NARRATIVE: CASE EVENT DATE: 20190514
